FAERS Safety Report 8871446 (Version 1)
Quarter: 2012Q4

REPORT INFORMATION
  Report Type: Spontaneous
  Country: US (occurrence: None)
  Receive Date: 20121026
  Receipt Date: 20121026
  Transmission Date: 20130627
  Serious: Yes (Other)
  Sender: FDA-Public Use
  Company Number: None

PATIENT
  Age: 55 Year
  Sex: Female
  Weight: 117.48 kg

DRUGS (2)
  1. LOSARTAN [Suspect]
     Indication: HYPERTENSION
     Dates: start: 20121023, end: 20121023
  2. LOSARTAN [Suspect]
     Indication: PROPHYLAXIS
     Dates: start: 20121023, end: 20121023

REACTIONS (6)
  - Skin discolouration [None]
  - Blood pressure increased [None]
  - Nausea [None]
  - Pain in extremity [None]
  - Headache [None]
  - Enzyme level increased [None]
